FAERS Safety Report 23246237 (Version 1)
Quarter: 2023Q4

REPORT INFORMATION
  Report Type: Other
  Country: FR (occurrence: FR)
  Receive Date: 20231130
  Receipt Date: 20231130
  Transmission Date: 20240109
  Serious: Yes (Hospitalization)
  Sender: FDA-Public Use
  Company Number: None

PATIENT

DRUGS (2)
  1. RUXOLITINIB [Suspect]
     Active Substance: RUXOLITINIB
     Indication: Polycythaemia vera
     Dosage: 2 DOSAGE FORM, QD, 1 CP MATIN ET SOIR
     Route: 048
     Dates: start: 20190517
  2. KETOPROFEN [Suspect]
     Active Substance: KETOPROFEN
     Indication: Arthralgia
     Dosage: 1 DOSAGE FORM
     Route: 048
     Dates: start: 20231110, end: 20231110

REACTIONS (1)
  - Necrotising fasciitis streptococcal [Recovering/Resolving]

NARRATIVE: CASE EVENT DATE: 20231110
